FAERS Safety Report 6480266-7 (Version None)
Quarter: 2009Q4

REPORT INFORMATION
  Report Type: 
  Country: None (occurrence: None)
  Receive Date: 20091123
  Receipt Date: 20090806
  Transmission Date: 20100525
  Serious: No
  Sender: FDA-Public Use
  Company Number: 8050030

PATIENT
  Age: 37 Year
  Sex: Female
  Weight: 110 kg

DRUGS (7)
  1. CIMZIA [Suspect]
     Indication: CROHN'S DISEASE
     Dosage: 400 MG /M SC
     Route: 058
     Dates: start: 20090408
  2. ASACOL [Concomitant]
  3. CALCIUM W/VITAMIN D [Concomitant]
  4. GLYBURIDE [Concomitant]
  5. LISINOPRIL [Concomitant]
  6. JULEESA B [Concomitant]
  7. METFORMIN HCL [Concomitant]

REACTIONS (2)
  - OROPHARYNGEAL PAIN [None]
  - RASH GENERALISED [None]
